FAERS Safety Report 7597479-3 (Version None)
Quarter: 2011Q3

REPORT INFORMATION
  Report Type: 
  Country: None (occurrence: None)
  Receive Date: 20110708
  Receipt Date: 20110628
  Transmission Date: 20111222
  Serious: Yes (Hospitalization, Other)
  Sender: FDA-Public Use
  Company Number: PHHY2011CN19023

PATIENT

DRUGS (1)
  1. MYFORTIC [Suspect]

REACTIONS (2)
  - MALABSORPTION [None]
  - INTESTINAL OBSTRUCTION [None]
